FAERS Safety Report 8914170 (Version 1)
Quarter: 2012Q4

REPORT INFORMATION
  Report Type: Spontaneous
  Country: US (occurrence: None)
  Receive Date: 20121114
  Receipt Date: 20121114
  Transmission Date: 20130627
  Serious: Yes (Other)
  Sender: FDA-Public Use
  Company Number: 2012SA081155

PATIENT
  Age: 46 Year
  Sex: Male

DRUGS (1)
  1. CAPZASIN HP CREME [Suspect]
     Indication: PAIN IN TOE
     Route: 061
     Dates: start: 20121011, end: 20121011

REACTIONS (4)
  - Application site pain [None]
  - Application site vesicles [None]
  - Skin exfoliation [None]
  - Product quality issue [None]
